FAERS Safety Report 7178896-2 (Version None)
Quarter: 2010Q4

REPORT INFORMATION
  Report Type: 
  Country: None (occurrence: None)
  Receive Date: 20101217
  Receipt Date: 20101217
  Transmission Date: 20110411
  Serious: Yes (Other)
  Sender: FDA-Public Use
  Company Number: None

PATIENT
  Sex: Male
  Weight: 78.7 kg

DRUGS (1)
  1. SORAFENIB - BAYER PHARMACEUTICALS [Suspect]
     Indication: TONGUE NEOPLASM MALIGNANT STAGE UNSPECIFIED
     Dosage: 200 MG PO BID QOD
     Route: 048
     Dates: start: 20090528, end: 20101207

REACTIONS (2)
  - OSTEONECROSIS OF JAW [None]
  - TOOTHACHE [None]
